FAERS Safety Report 18060822 (Version 1)
Quarter: 2020Q3

REPORT INFORMATION
  Report Type: Spontaneous
  Country: US (occurrence: US)
  Receive Date: 20200723
  Receipt Date: 20200723
  Transmission Date: 20201103
  Serious: Yes (Other)
  Sender: FDA-Public Use
  Company Number: US-GLAXOSMITHKLINE-US2020138119

PATIENT
  Age: 76 Year
  Sex: Female

DRUGS (1)
  1. ANORO ELLIPTA [Suspect]
     Active Substance: UMECLIDINIUM BROMIDE\VILANTEROL TRIFENATATE
     Indication: CHRONIC OBSTRUCTIVE PULMONARY DISEASE
     Dosage: UNK
     Dates: start: 201909

REACTIONS (12)
  - Cough [Unknown]
  - Laser therapy [Unknown]
  - Sinus operation [Unknown]
  - Glaucoma [Unknown]
  - Condition aggravated [Unknown]
  - Pharyngitis [Unknown]
  - Muscle spasms [Unknown]
  - Constipation [Unknown]
  - Gastric dilatation [Unknown]
  - Sinusitis [Unknown]
  - Chest pain [Unknown]
  - Neck pain [Unknown]

NARRATIVE: CASE EVENT DATE: 202006
